FAERS Safety Report 12609034 (Version 1)
Quarter: 2016Q3

REPORT INFORMATION
  Report Type: Report from Study
  Country: BR (occurrence: BR)
  Receive Date: 20160731
  Receipt Date: 20160731
  Transmission Date: 20161109
  Serious: Yes (Other)
  Sender: FDA-Public Use
  Company Number: PHHY2016BR102821

PATIENT
  Age: 59 Year
  Sex: Female
  Weight: 62 kg

DRUGS (2)
  1. EXELON PATCH [Suspect]
     Active Substance: RIVASTIGMINE
     Indication: MEMORY IMPAIRMENT
     Dosage: 4.6 MG [PATCH 5 (CM) 2], QD
     Route: 062
     Dates: start: 20160520
  2. EXELON PATCH [Suspect]
     Active Substance: RIVASTIGMINE
     Indication: PROPHYLAXIS
     Dosage: 9.5 MG [PATCH 10 (CM) 2], QD
     Route: 062

REACTIONS (8)
  - Ligament sprain [Unknown]
  - Balance disorder [Recovered/Resolved]
  - Skin discolouration [Unknown]
  - Fall [Recovered/Resolved]
  - Social avoidant behaviour [Unknown]
  - Pallor [Unknown]
  - Scratch [Unknown]
  - Drug ineffective [Unknown]

NARRATIVE: CASE EVENT DATE: 20160720
